FAERS Safety Report 5224500-X (Version None)
Quarter: 2007Q1

REPORT INFORMATION
  Report Type: 
  Country: None (occurrence: None)
  Receive Date: 20070130
  Receipt Date: 20070118
  Transmission Date: 20070707
  Serious: Yes (Other)
  Sender: FDA-Public Use
  Company Number: FR-PFIZER INC-2007005184

PATIENT
  Sex: Female

DRUGS (1)
  1. LYRICA [Suspect]
     Indication: TRIGEMINAL NEURALGIA
     Dosage: DAILY DOSE:225MG

REACTIONS (4)
  - GENERALISED OEDEMA [None]
  - LOCALISED OEDEMA [None]
  - NAUSEA [None]
  - OEDEMA PERIPHERAL [None]
